FAERS Safety Report 25606515 (Version 3)
Quarter: 2025Q3

REPORT INFORMATION
  Report Type: Spontaneous
  Country: JP (occurrence: JP)
  Receive Date: 20250725
  Receipt Date: 20250918
  Transmission Date: 20251020
  Serious: Yes (Death, Disabling, Other)
  Sender: AMGEN
  Company Number: JP-AMGEN-JPNSP2025134032

PATIENT
  Age: 71 Year
  Sex: Male

DRUGS (1)
  1. BLINCYTO [Suspect]
     Active Substance: BLINATUMOMAB
     Indication: B precursor type acute leukaemia
     Dosage: UNK UNK, QD (DRIP INFUSION)
     Route: 040
     Dates: start: 20250703, end: 202507

REACTIONS (4)
  - Death [Fatal]
  - Aspiration [Unknown]
  - Cytokine release syndrome [Recovering/Resolving]
  - Pleural effusion [Unknown]

NARRATIVE: CASE EVENT DATE: 20250701
